FAERS Safety Report 5760590-3 (Version None)
Quarter: 2008Q2

REPORT INFORMATION
  Report Type: 
  Country: None (occurrence: None)
  Receive Date: 20080602
  Receipt Date: 20080523
  Transmission Date: 20081010
  Serious: Yes (Other)
  Sender: FDA-Public Use
  Company Number: 028367

PATIENT
  Age: 48 Year
  Sex: Male

DRUGS (6)
  1. ALENDRONATE SODIUM [Suspect]
     Indication: OSTEOPENIA
     Dosage: 35 MG, WEEKLY
  2. PREDNISONE TAB [Concomitant]
  3. TACROLIMUS [Concomitant]
  4. MYCOPHENOLATE MOFETIL [Concomitant]
  5. ENALAPRIL MALEATE [Concomitant]
  6. NIFEDIPINE [Concomitant]

REACTIONS (2)
  - FOCAL SEGMENTAL GLOMERULOSCLEROSIS [None]
  - RENAL TUBULAR ATROPHY [None]
